FAERS Safety Report 24366748 (Version 1)
Quarter: 2024Q3

REPORT INFORMATION
  Report Type: Report from Study
  Country: US (occurrence: US)
  Receive Date: 20240926
  Receipt Date: 20240926
  Transmission Date: 20241016
  Serious: Yes (Disabling, Other)
  Sender: GLAXOSMITHKLINE
  Company Number: US-GSK-US2024116536

PATIENT

DRUGS (1)
  1. BELIMUMAB [Suspect]
     Active Substance: BELIMUMAB
     Indication: Product used for unknown indication
     Dosage: UNK
     Dates: start: 2022

REACTIONS (4)
  - Disability [Unknown]
  - Confusional state [Unknown]
  - Cognitive disorder [Unknown]
  - Frustration tolerance decreased [Unknown]
